FAERS Safety Report 17563099 (Version 11)
Quarter: 2020Q4

REPORT INFORMATION
  Report Type: Report from Study
  Country: CA (occurrence: CA)
  Receive Date: 20200319
  Receipt Date: 20201204
  Transmission Date: 20210113
  Serious: Yes (Other)
  Sender: FDA-Public Use
  Company Number: CA-BAUSCH-BL-2019-064621

PATIENT
  Age: 50 Year
  Sex: Female
  Weight: 88.53 kg

DRUGS (7)
  1. METHOTREXATE. [Suspect]
     Active Substance: METHOTREXATE
     Route: 065
     Dates: start: 2020
  2. FOLIC ACID. [Concomitant]
     Active Substance: FOLIC ACID
     Indication: ARTHRALGIA
  3. SILIQ [Suspect]
     Active Substance: BRODALUMAB
     Dosage: 210MG/ 1.5 ML
     Route: 058
     Dates: start: 2020
  4. METHOTREXATE. [Suspect]
     Active Substance: METHOTREXATE
     Indication: ARTHRALGIA
     Route: 065
     Dates: end: 2020
  5. METHOTREXATE. [Suspect]
     Active Substance: METHOTREXATE
     Indication: PSORIASIS
     Route: 065
     Dates: end: 201910
  6. METHOTREXATE. [Suspect]
     Active Substance: METHOTREXATE
     Route: 065
     Dates: start: 2020, end: 2020
  7. SILIQ [Suspect]
     Active Substance: BRODALUMAB
     Indication: PSORIASIS
     Dosage: 210MG/ 1.5 ML, WEEK 0,1,2
     Route: 058
     Dates: start: 20191203, end: 20191217

REACTIONS (18)
  - Injection site bruising [Unknown]
  - Gait disturbance [Not Recovered/Not Resolved]
  - Stress [Not Recovered/Not Resolved]
  - Pruritus [Unknown]
  - Hepatic lesion [Unknown]
  - Injection site pain [Unknown]
  - Patient dissatisfaction with treatment [Unknown]
  - Polyp [Unknown]
  - Ill-defined disorder [Not Recovered/Not Resolved]
  - Onychalgia [Not Recovered/Not Resolved]
  - Injection site mass [Recovered/Resolved]
  - Liver function test increased [Not Recovered/Not Resolved]
  - Psoriasis [Not Recovered/Not Resolved]
  - Feeling abnormal [Unknown]
  - Blood pressure increased [Unknown]
  - Urticaria [Unknown]
  - Body temperature decreased [Unknown]
  - Skin laceration [Unknown]

NARRATIVE: CASE EVENT DATE: 201912
